FAERS Safety Report 7069644-5 (Version None)
Quarter: 2010Q4

REPORT INFORMATION
  Report Type: 
  Country: None (occurrence: None)
  Receive Date: 20101028
  Receipt Date: 20100406
  Transmission Date: 20110411
  Serious: No
  Sender: FDA-Public Use
  Company Number: US-WYE-H14474210

PATIENT
  Sex: Female
  Weight: 78.09 kg

DRUGS (6)
  1. EFFEXOR [Suspect]
     Indication: DEPRESSION
     Dosage: UNKNOWN
     Route: 048
     Dates: start: 20070101
  2. EFFEXOR [Suspect]
     Indication: PANIC ATTACK
     Dosage: UNKNOWN
     Route: 065
     Dates: start: 20090101
  3. LEVOTHYROXINE SODIUM [Concomitant]
     Indication: HYPOTHYROIDISM
     Dosage: UNKNOWN
     Route: 065
  4. ROSUVASTATIN [Concomitant]
  5. ALPRAZOLAM [Concomitant]
     Indication: ANXIETY
     Dosage: UNKNOWN
     Route: 065
  6. ALPRAZOLAM [Concomitant]
     Indication: PANIC ATTACK

REACTIONS (2)
  - NONSPECIFIC REACTION [None]
  - WEIGHT DECREASED [None]
